FAERS Safety Report 19601611 (Version 1)
Quarter: 2021Q3

REPORT INFORMATION
  Report Type: Spontaneous
  Country: DE (occurrence: DE)
  Receive Date: 20210723
  Receipt Date: 20210723
  Transmission Date: 20211014
  Serious: Yes (Life-Threatening, Hospitalization, Other)
  Sender: FDA-Public Use
  Company Number: DE-AUROBINDO-AUR-APL-2021-029997

PATIENT
  Age: 40 Year
  Sex: Female
  Weight: 100 kg

DRUGS (83)
  1. VALSARTAN 1A PHARMA [Suspect]
     Active Substance: VALSARTAN
     Indication: PRODUCT USED FOR UNKNOWN INDICATION
     Dosage: UNK
     Route: 065
     Dates: start: 201407, end: 201410
  2. VALSARTAN 1A PHARMA [Suspect]
     Active Substance: VALSARTAN
     Dosage: UNK
     Route: 065
     Dates: start: 20150611
  3. GRANOCYTE [Suspect]
     Active Substance: LENOGRASTIM
     Indication: NEUTROPENIA
     Dosage: UNK
     Route: 065
     Dates: start: 201511, end: 201511
  4. GRANOCYTE [Suspect]
     Active Substance: LENOGRASTIM
     Dosage: UNK(1X 34, QD, 1X DAILY. )
     Route: 065
     Dates: start: 20160203, end: 20160205
  5. VALSARTAN HEXAL COMP [Suspect]
     Active Substance: HYDROCHLOROTHIAZIDE\VALSARTAN
     Dosage: UNK
     Route: 065
     Dates: start: 20150611
  6. VALSARTAN HEXAL COMP [Suspect]
     Active Substance: HYDROCHLOROTHIAZIDE\VALSARTAN
     Dosage: UNK
     Route: 065
     Dates: start: 20150415
  7. VALSARTAN HEXAL COMP [Suspect]
     Active Substance: HYDROCHLOROTHIAZIDE\VALSARTAN
     Dosage: UNK
     Route: 065
     Dates: start: 20160427
  8. MORPHINE [Concomitant]
     Active Substance: MORPHINE
     Indication: PAIN
     Dosage: UNK
     Route: 065
  9. BACLOFEN. [Concomitant]
     Active Substance: BACLOFEN
     Dosage: UNK
     Route: 048
     Dates: start: 20170704, end: 20170712
  10. PANTOZOLE [Concomitant]
     Active Substance: PANTOPRAZOLE SODIUM
     Dosage: UNK(1X 40, 1X DAILY (EVENING) ), ONCE A DAY
     Route: 065
  11. IBUPROFEN. [Suspect]
     Active Substance: IBUPROFEN
     Indication: PRODUCT USED FOR UNKNOWN INDICATION
     Dosage: UNK
     Route: 065
  12. DIPIDOLOR [Suspect]
     Active Substance: PIRITRAMIDE
     Indication: BACK PAIN
     Dosage: UNK
     Route: 065
  13. VINCRISTINE [Suspect]
     Active Substance: VINCRISTINE
     Indication: HODGKIN^S DISEASE
     Dosage: 2 MILLIGRAM,ABSOLUTE, DAY 8
     Route: 065
     Dates: start: 20160120
  14. BACLOFEN. [Suspect]
     Active Substance: BACLOFEN
     Dosage: UNK(200 ?G/20 MG VIA PUMP )
     Route: 058
  15. BACLOFEN. [Suspect]
     Active Substance: BACLOFEN
     Dosage: 200 MICROGRAM(200 UG, VIA PUMP )
     Route: 058
  16. PREDNISOLONE. [Suspect]
     Active Substance: PREDNISOLONE
     Indication: HODGKIN^S DISEASE
     Dosage: 40 MG/M2 (80 MG) DAY 1?14, DAILY
     Route: 065
     Dates: start: 20160113, end: 20160126
  17. GRANOCYTE [Suspect]
     Active Substance: LENOGRASTIM
     Dosage: UNK(1X 34, QD, 1X DAILY. ), ONCE A DAY
     Route: 065
     Dates: start: 20160120
  18. DIAZEPAM. [Concomitant]
     Active Substance: DIAZEPAM
     Dosage: 1 UNK,(1X 2.5, QD, 1X DAILY (MORNING) ) ONCE A DAY
  19. TRANXILIUM [Concomitant]
     Active Substance: CLORAZEPATE DIPOTASSIUM
     Indication: PRODUCT USED FOR UNKNOWN INDICATION
     Dosage: 10 MILLIGRAM (1X 10 MG, QD, 1X DAILY (MORNING)), ONCE A DAY
  20. MOVICOL [Concomitant]
     Active Substance: POLYETHYLENE GLYCOL 3350\POTASSIUM CHLORIDE\SODIUM BICARBONATE\SODIUM CHLORIDE
     Indication: PRODUCT USED FOR UNKNOWN INDICATION
     Dosage: 1 DF, SACHET, 1X IF NEEDED
     Route: 065
  21. COTRIMOX [Concomitant]
     Active Substance: SULFAMETHOXAZOLE\TRIMETHOPRIM
     Indication: PRODUCT USED FOR UNKNOWN INDICATION
     Dosage: UNK
     Route: 065
  22. VALSACOR COMP [Concomitant]
     Active Substance: HYDROCHLOROTHIAZIDE\VALSARTAN
     Indication: HYPERTENSION
     Dosage: UNK
     Route: 065
     Dates: start: 20170411
  23. LYRICA [Concomitant]
     Active Substance: PREGABALIN
     Dosage: UNK(1X 75, 1X DAILY (EVENING), START DATE: FEB/MAR 2016 )
     Route: 065
  24. ACETYLSALICYLIC ACID [Suspect]
     Active Substance: ASPIRIN
     Indication: PRODUCT USED FOR UNKNOWN INDICATION
     Dosage: UNK
     Route: 065
  25. DIPIDOLOR [Suspect]
     Active Substance: PIRITRAMIDE
     Indication: PAIN IN EXTREMITY
     Dosage: 15 MILLIGRAM
     Route: 065
     Dates: start: 20150608
  26. CAELYX [Suspect]
     Active Substance: DOXORUBICIN HYDROCHLORIDE
     Indication: HODGKIN^S DISEASE
     Dosage: 25 MILLIGRAM/SQ. METER
     Route: 065
     Dates: start: 20151027
  27. BACLOFEN. [Suspect]
     Active Substance: BACLOFEN
     Dosage: UNK
     Route: 065
     Dates: start: 20180228
  28. CYCLOPHOSPHAMIDE. [Suspect]
     Active Substance: CYCLOPHOSPHAMIDE
     Indication: HODGKIN^S DISEASE
     Dosage: 750 MILLIGRAM/SQ. METER
     Route: 065
     Dates: start: 20160113
  29. DIAZEPAM. [Concomitant]
     Active Substance: DIAZEPAM
     Indication: PRODUCT USED FOR UNKNOWN INDICATION
     Dosage: 1X 2.5, QD, 1X DAILY (EVENING)
     Route: 065
  30. BACLOFEN. [Concomitant]
     Active Substance: BACLOFEN
     Indication: PRODUCT USED FOR UNKNOWN INDICATION
     Dosage: UNK (25/20 MG IN MORNING, 20 MG IN NOON, 20 MG IN EVENING
     Route: 065
  31. BACLOFEN. [Concomitant]
     Active Substance: BACLOFEN
     Dosage: 200 MICROGRAM
     Route: 065
  32. MOVICOLON [Concomitant]
     Active Substance: POLYETHYLENE GLYCOL 3350\POTASSIUM CHLORIDE\SODIUM BICARBONATE\SODIUM CHLORIDE
     Indication: PRODUCT USED FOR UNKNOWN INDICATION
     Dosage: 1 DOSAGE ,AS NECESSARY
     Route: 065
  33. BLEOMYCIN [Suspect]
     Active Substance: BLEOMYCIN SULFATE
     Indication: HODGKIN^S DISEASE
     Dosage: 25 MILLIGRAM/SQ. METER (DAY 1 AND DAY 15)
     Route: 065
     Dates: start: 20151027, end: 201512
  34. PARACETAMOL [Suspect]
     Active Substance: ACETAMINOPHEN
     Indication: PRODUCT USED FOR UNKNOWN INDICATION
     Dosage: UNK
     Route: 065
  35. VALSARTAN HEXAL COMP [Suspect]
     Active Substance: HYDROCHLOROTHIAZIDE\VALSARTAN
     Indication: HYPERTENSION
     Dosage: UNK
     Route: 065
     Dates: start: 20141014
  36. VALSARTAN HEXAL COMP [Suspect]
     Active Substance: HYDROCHLOROTHIAZIDE\VALSARTAN
     Dosage: UNK
     Route: 065
     Dates: start: 20170112
  37. VINBLASTINE [Suspect]
     Active Substance: VINBLASTINE
     Indication: HODGKIN^S DISEASE
     Dosage: 6 MILLIGRAM/SQ. METER
     Route: 065
     Dates: start: 20151027, end: 201512
  38. COTRIMOX FORTE [Concomitant]
     Active Substance: SULFAMETHOXAZOLE\TRIMETHOPRIM
     Indication: PNEUMONIA
     Dosage: 2 DOSAGE FORM,(SATURDAY AND SUNDAY ) ONCE A DAY
     Route: 058
  39. BACLOFEN. [Concomitant]
     Active Substance: BACLOFEN
     Dosage: UNK((25/20 MG IN MORNING, 20 MG IN NOON, 20 MG IN EVENING )
  40. CLONIDINE. [Concomitant]
     Active Substance: CLONIDINE
     Indication: PRODUCT USED FOR UNKNOWN INDICATION
     Dosage: UNK UNK, BID (1X0.5 MG)
     Route: 065
  41. LYRICA [Concomitant]
     Active Substance: PREGABALIN
     Indication: PRODUCT USED FOR UNKNOWN INDICATION
     Dosage: 1X 150, 1X, STOP DATE: FEB/MAR 2016
     Route: 065
  42. DACARBAZINE. [Suspect]
     Active Substance: DACARBAZINE
     Indication: HODGKIN^S DISEASE
     Dosage: 375 MILLIGRAM/SQ. METER(DAY 1 AND DAY 15)
     Route: 065
     Dates: start: 20151027, end: 201512
  43. GRANOCYTE [Suspect]
     Active Substance: LENOGRASTIM
     Dosage: UNK
     Route: 065
     Dates: start: 201511
  44. VALSARTAN. [Concomitant]
     Active Substance: VALSARTAN
     Indication: HYPERTENSION
     Dosage: UNK
     Route: 065
     Dates: start: 201301
  45. TRANXILIUM [Concomitant]
     Active Substance: CLORAZEPATE DIPOTASSIUM
     Dosage: 15 MILLIGRAM, (1X 15 MG, QD, 1X DAILY (EVENING OR NIGHT) )ONCE A DAY
  46. PANTOZOLE [Concomitant]
     Active Substance: PANTOPRAZOLE SODIUM
     Dosage: 1 UNK(1X 40, 1X DAILY (MORNING) )
  47. VALSARTAN 1A PHARMA [Suspect]
     Active Substance: VALSARTAN
     Indication: HYPERTENSION
     Dosage: UNK
     Route: 065
     Dates: start: 20150102
  48. VALSARTAN/HYDROCHLORTHIAZID [Suspect]
     Active Substance: HYDROCHLOROTHIAZIDE\VALSARTAN
     Indication: HYPERTENSION
     Dosage: 80 MILLIGRAM
     Route: 065
     Dates: start: 20140707
  49. VALSARTAN/HYDROCHLORTHIAZID [Suspect]
     Active Substance: HYDROCHLOROTHIAZIDE\VALSARTAN
     Dosage: 80 MILLIGRAM(160/ 12.5 MG )
     Route: 065
  50. NEULASTA [Suspect]
     Active Substance: PEGFILGRASTIM
     Indication: NEUTROPENIA
     Dosage: UNK
     Route: 058
     Dates: start: 20151212, end: 20151212
  51. BACLOFEN. [Suspect]
     Active Substance: BACLOFEN
     Indication: PRODUCT USED FOR UNKNOWN INDICATION
     Dosage: 25 MILLIGRAM
     Route: 065
     Dates: start: 20180102
  52. ETOPOSIDE. [Suspect]
     Active Substance: ETOPOSIDE
     Indication: HODGKIN^S DISEASE
     Dosage: 100 MILLIGRAM/SQ. METER
     Route: 065
     Dates: start: 20160113
  53. DIAZEPAM. [Concomitant]
     Active Substance: DIAZEPAM
     Dosage: 10 MILLIGRAM(10 MG1X 2.5, QD, 1X DAILY (EVENING)10 MG1X 2.5, QD, 1X DAILY (MORNING) )
  54. TRANXILIUM [Concomitant]
     Active Substance: CLORAZEPATE DIPOTASSIUM
     Dosage: 20 MILLIGRAM (1X 10 MG, BID, 2X DAILY (MORNING AND EVENING) ), ONCE A DAY
     Route: 065
  55. VALSACOR COMP [Concomitant]
     Active Substance: HYDROCHLOROTHIAZIDE\VALSARTAN
     Dosage: UNK
     Route: 065
     Dates: start: 201704
  56. VALSACOR COMP [Concomitant]
     Active Substance: HYDROCHLOROTHIAZIDE\VALSARTAN
     Dosage: UNK
     Route: 065
     Dates: start: 20170725
  57. LEVOTHYROXINE. [Concomitant]
     Active Substance: LEVOTHYROXINE
     Indication: PRODUCT USED FOR UNKNOWN INDICATION
     Dosage: UNK
     Route: 065
  58. LYRICA [Concomitant]
     Active Substance: PREGABALIN
     Dosage: UNK(1X 150, 2X DAILY (MORNING AND EVENING) )
     Route: 065
  59. PALLADON [Concomitant]
     Active Substance: HYDROMORPHONE
     Dosage: 16 MILLIGRAM (8 MG, BID ), ONCE A DAY
     Route: 065
  60. VALSARTAN 1A PHARMA [Suspect]
     Active Substance: VALSARTAN
     Dosage: UNK
     Route: 065
     Dates: start: 20160804
  61. BLEOMYCIN [Suspect]
     Active Substance: BLEOMYCIN SULFATE
     Dosage: 10 MILLIGRAM/SQ. METER
     Route: 065
     Dates: start: 20160120
  62. CAELYX [Suspect]
     Active Substance: DOXORUBICIN HYDROCHLORIDE
     Dosage: 25 MILLIGRAM/SQ. METER
     Route: 065
     Dates: start: 20160113
  63. VALSARTAN HEXAL COMP [Suspect]
     Active Substance: HYDROCHLOROTHIAZIDE\VALSARTAN
     Indication: PRODUCT USED FOR UNKNOWN INDICATION
     Dosage: UNK
     Route: 065
     Dates: start: 20140707
  64. VALSARTAN HEXAL COMP [Suspect]
     Active Substance: HYDROCHLOROTHIAZIDE\VALSARTAN
     Dosage: UNK
     Route: 065
     Dates: start: 20160804
  65. BACLOFEN. [Concomitant]
     Active Substance: BACLOFEN
     Dosage: 25 MILLIGRAM((1?1?1?1 ONCE IN MORNING, NOON, AFTERNOON, EVENING )
     Route: 048
     Dates: start: 20180102
  66. BACLOFEN. [Concomitant]
     Active Substance: BACLOFEN
     Dosage: 80 MICROGRAM, (VIA PUMP ) ONCE A DAY
     Route: 065
  67. MOTILIUM [Concomitant]
     Active Substance: DOMPERIDONE
     Indication: PRODUCT USED FOR UNKNOWN INDICATION
     Dosage: 10 MILLIGRAM(10 MG, ONCE IN THE MORNING, NOON AND EVENING))
     Route: 048
  68. PALLADON [Concomitant]
     Active Substance: HYDROMORPHONE
     Indication: PRODUCT USED FOR UNKNOWN INDICATION
     Dosage: 16 MILLIGRAM, ONCE A DAY
     Route: 065
  69. PANTOZOLE [Concomitant]
     Active Substance: PANTOPRAZOLE SODIUM
     Indication: PRODUCT USED FOR UNKNOWN INDICATION
     Dosage: 40 MILLIGRAM(40 MG, QD), ONCE A DAY
     Route: 065
  70. MOVICOLON [Concomitant]
     Active Substance: POLYETHYLENE GLYCOL 3350\POTASSIUM CHLORIDE\SODIUM BICARBONATE\SODIUM CHLORIDE
     Dosage: 1 UNK,(SACHET, 1X DAILY (MORNING) ) ONCE A DAY
     Route: 065
  71. DIAZEPAM. [Suspect]
     Active Substance: DIAZEPAM
     Indication: BACK PAIN
     Dosage: 10 MILLIGRAM
     Route: 065
     Dates: start: 20150608
  72. DICLOFENAC [Suspect]
     Active Substance: DICLOFENAC
     Indication: PRODUCT USED FOR UNKNOWN INDICATION
     Dosage: UNK
     Route: 065
  73. PROCARBAZINE [Suspect]
     Active Substance: PROCARBAZINE
     Indication: HODGKIN^S DISEASE
     Dosage: 100 MG/M2 (200 MG), DAY 1?7, DAILY
     Route: 065
     Dates: start: 20190113, end: 20190119
  74. VALSARTAN HEXAL COMP [Suspect]
     Active Substance: HYDROCHLOROTHIAZIDE\VALSARTAN
     Dosage: UNK
     Route: 065
     Dates: start: 20150102
  75. CLEXANE [Concomitant]
     Active Substance: ENOXAPARIN SODIUM
     Indication: THROMBOSIS PROPHYLAXIS
     Dosage: 40 MILLIGRAM, (40 MG, QD)ONCE A DAY
     Route: 058
  76. VALSARTAN. [Concomitant]
     Active Substance: VALSARTAN
     Dosage: UNK
     Route: 065
  77. BACLOFEN. [Concomitant]
     Active Substance: BACLOFEN
     Dosage: 80 MICROGRAM
  78. BACLOFEN. [Concomitant]
     Active Substance: BACLOFEN
     Dosage: 50 MICROGRAM, (VIA PUMP )ONCE A DAY
     Route: 065
  79. CLONIDINE. [Concomitant]
     Active Substance: CLONIDINE
     Dosage: 0.3 MICROGRAM ((0.15 UG, BID (1?0?1 IN MORNINGA AND EVENING) ), ONCE A DAY
     Route: 065
  80. LYRICA [Concomitant]
     Active Substance: PREGABALIN
     Dosage: UNK(2X 75, 1X DAILY (MORNING), START DATE: FEB/MAR 2016 )
     Route: 065
  81. CITALOPRAM [Concomitant]
     Active Substance: CITALOPRAM HYDROBROMIDE
     Indication: PRODUCT USED FOR UNKNOWN INDICATION
     Dosage: UNK UNK,(1X 20, 1X DAILY (MORNING) ) ONCE A DAY
     Route: 065
  82. VIGANTOLETTEN [Concomitant]
     Active Substance: CHOLECALCIFEROL
     Indication: PRODUCT USED FOR UNKNOWN INDICATION
     Dosage: 100 MILLIGRAM, (IN THE MORNING)
     Route: 048
  83. MOTILIUM [Concomitant]
     Active Substance: DOMPERIDONE
     Indication: PRODUCT USED FOR UNKNOWN INDICATION
     Dosage: 4 DOSAGE FORM, (1 DF,SACHET, 4X DAILY)ONCE A DAY
     Route: 065

REACTIONS (68)
  - Fall [Unknown]
  - Sleep apnoea syndrome [Unknown]
  - Psychogenic seizure [Unknown]
  - Hypochromic anaemia [Unknown]
  - Abdominal tenderness [Unknown]
  - Drug abuse [Unknown]
  - Anaesthesia [Unknown]
  - Red blood cell sedimentation rate increased [Unknown]
  - Drug hypersensitivity [Unknown]
  - Speech disorder [Unknown]
  - Renal cyst [Unknown]
  - Vomiting [Recovering/Resolving]
  - Hyperhidrosis [Unknown]
  - Off label use [Unknown]
  - Lymphadenopathy [Recovering/Resolving]
  - Hepatic steatosis [Unknown]
  - Dyspnoea [Unknown]
  - Loss of consciousness [Unknown]
  - Dysphagia [Unknown]
  - Candida infection [Unknown]
  - Muscle spasticity [Unknown]
  - Viral infection [Unknown]
  - Hyperpyrexia [Unknown]
  - Pneumonia [Unknown]
  - Spinal pain [Unknown]
  - Fall [Recovered/Resolved]
  - Respiratory failure [Unknown]
  - Pyrexia [Recovered/Resolved]
  - Fatigue [Unknown]
  - Product use in unapproved indication [Unknown]
  - Back pain [Recovering/Resolving]
  - Dysaesthesia [Unknown]
  - Neurological decompensation [Unknown]
  - Sleep disorder [Unknown]
  - Myalgia [Unknown]
  - Hypothyroidism [Unknown]
  - General physical health deterioration [Unknown]
  - Cough [Unknown]
  - Inflammation [Unknown]
  - Uterine enlargement [Unknown]
  - Nausea [Recovering/Resolving]
  - Intervertebral disc disorder [Unknown]
  - Neutropenia [Recovering/Resolving]
  - Hypokinesia [Unknown]
  - Basal ganglion degeneration [Unknown]
  - Fatigue [Unknown]
  - Splenomegaly [Unknown]
  - Urinary tract infection [Unknown]
  - Tissue infiltration [Unknown]
  - Bone pain [Recovering/Resolving]
  - Hyperventilation [Unknown]
  - Inguinal hernia [Unknown]
  - Hodgkin^s disease [Unknown]
  - Somnolence [Unknown]
  - Hypoaesthesia [Unknown]
  - Klebsiella infection [Unknown]
  - Lung disorder [Unknown]
  - Monoplegia [Unknown]
  - Obesity [Unknown]
  - Pyrexia [Recovered/Resolved]
  - Pulmonary congestion [Unknown]
  - Headache [Unknown]
  - Arthralgia [Unknown]
  - Tachycardia [Unknown]
  - Pain in extremity [Unknown]
  - Dizziness [Unknown]
  - Tremor [Unknown]
  - Pain [Unknown]

NARRATIVE: CASE EVENT DATE: 20150608
